FAERS Safety Report 21139149 (Version 1)
Quarter: 2022Q3

REPORT INFORMATION
  Report Type: Spontaneous
  Country: US (occurrence: None)
  Receive Date: 20220727
  Receipt Date: 20220727
  Transmission Date: 20221027
  Serious: No
  Sender: FDA-Public Use
  Company Number: None

PATIENT
  Age: 74 Year
  Weight: 69.4 kg

DRUGS (12)
  1. LINZESS [Suspect]
     Active Substance: LINACLOTIDE
     Indication: Constipation
     Dosage: OTHER QUANTITY : 1 CAPSULE;?OTHER FREQUENCY : IN THE MORNING;?
     Route: 048
     Dates: start: 20220115, end: 20220315
  2. CLOPIDOGREL [Concomitant]
     Active Substance: CLOPIDOGREL BISULFATE
  3. ATORVASTATIN [Concomitant]
     Active Substance: ATORVASTATIN
  4. FLOMAX [Concomitant]
     Active Substance: TAMSULOSIN HYDROCHLORIDE
  5. FAMOTIDINE [Concomitant]
     Active Substance: FAMOTIDINE
  6. TRAZODONE [Concomitant]
     Active Substance: TRAZODONE HYDROCHLORIDE
  7. CLONAZEPAM [Concomitant]
     Active Substance: CLONAZEPAM
  8. PROLIA [Concomitant]
     Active Substance: DENOSUMAB
  9. LIDOCAINE [Concomitant]
     Active Substance: LIDOCAINE
  10. RESTASIS [Concomitant]
     Active Substance: CYCLOSPORINE
  11. VITAMIN D3 [Concomitant]
     Active Substance: CHOLECALCIFEROL
  12. CALCIUM CITRATE [Concomitant]
     Active Substance: CALCIUM CITRATE

REACTIONS (12)
  - Dyspnoea [None]
  - Fatigue [None]
  - Eyelid disorder [None]
  - Eye pain [None]
  - Dry eye [None]
  - Dry throat [None]
  - Cough [None]
  - Swollen tongue [None]
  - Erythema [None]
  - Rash [None]
  - Pruritus [None]
  - Frequent bowel movements [None]

NARRATIVE: CASE EVENT DATE: 20220101
